FAERS Safety Report 12641500 (Version 2)
Quarter: 2017Q1

REPORT INFORMATION
  Report Type: Spontaneous
  Country: JP (occurrence: JP)
  Receive Date: 20160810
  Receipt Date: 20170316
  Transmission Date: 20170428
  Serious: Yes (Hospitalization)
  Sender: FDA-Public Use
  Company Number: JP-ELI_LILLY_AND_COMPANY-JP201608004444

PATIENT
  Age: 83 Year
  Sex: Male

DRUGS (5)
  1. ASPIRIN                            /00002701/ [Concomitant]
     Active Substance: ASPIRIN
     Indication: SILENT MYOCARDIAL INFARCTION
     Dosage: 100 MG, QD
     Route: 065
  2. PRASUGREL HYDROCHLORIDE [Suspect]
     Active Substance: PRASUGREL HYDROCHLORIDE
     Indication: CORONARY ANGIOPLASTY
     Dosage: 3.75 MG, QD
     Route: 048
     Dates: start: 20150107, end: 20150113
  3. PRASUGREL HYDROCHLORIDE [Suspect]
     Active Substance: PRASUGREL HYDROCHLORIDE
     Indication: SILENT MYOCARDIAL INFARCTION
     Dosage: 20 MG, QD
     Route: 048
     Dates: start: 20150107, end: 20150107
  4. PRASUGREL HYDROCHLORIDE [Suspect]
     Active Substance: PRASUGREL HYDROCHLORIDE
     Dosage: 2.5 MG, QD
     Route: 048
     Dates: start: 20150114
  5. BUFFERIN [Suspect]
     Active Substance: ASPIRIN
     Indication: SILENT MYOCARDIAL INFARCTION
     Dosage: 100MG/DAY
     Route: 065
     Dates: end: 20150114

REACTIONS (1)
  - Gastrointestinal haemorrhage [Recovered/Resolved]

NARRATIVE: CASE EVENT DATE: 20150111
